FAERS Safety Report 12119654 (Version 1)
Quarter: 2016Q1

REPORT INFORMATION
  Report Type: Spontaneous
  Country: US (occurrence: None)
  Receive Date: 20160225
  Receipt Date: 20160225
  Transmission Date: 20160526
  Serious: Yes (Hospitalization)
  Sender: FDA-Public Use
  Company Number: None

PATIENT
  Age: 48 Year
  Sex: Male
  Weight: 112.7 kg

DRUGS (2)
  1. MICONAZOLE. [Suspect]
     Active Substance: MICONAZOLE
     Route: 061
     Dates: start: 20160114, end: 20160124
  2. CEPHALEXIN. [Suspect]
     Active Substance: CEPHALEXIN
     Indication: INFECTION
     Route: 048
     Dates: start: 20160115, end: 20160124

REACTIONS (8)
  - Scrotal oedema [None]
  - Rash pruritic [None]
  - Drug eruption [None]
  - Pyrexia [None]
  - Lip oedema [None]
  - Angioedema [None]
  - Urticaria [None]
  - Hepatic enzyme increased [None]

NARRATIVE: CASE EVENT DATE: 20160124
